FAERS Safety Report 8792714 (Version 13)
Quarter: 2018Q3

REPORT INFORMATION
  Report Type: Spontaneous
  Country: DE (occurrence: DE)
  Receive Date: 20120918
  Receipt Date: 20180926
  Transmission Date: 20181010
  Serious: Yes (Death, Congenital Anomaly, Other)
  Sender: FDA-Public Use
  Company Number: DE-009507513-1209DEU004039

PATIENT
  Weight: .56 kg

DRUGS (20)
  1. EZETIMIBE MSD?SP [Suspect]
     Active Substance: EZETIMIBE
     Indication: FOETAL EXPOSURE DURING PREGNANCY
     Dosage: UNK
     Route: 064
  2. CLEXANE (ENOXAPARIN SODIUM) [Suspect]
     Active Substance: ENOXAPARIN SODIUM
     Indication: FOETAL EXPOSURE DURING PREGNANCY
     Dosage: 200 MG/D (2X100)
     Route: 064
     Dates: start: 20111214, end: 20120320
  3. NOVAMINSULFON [Suspect]
     Active Substance: METAMIZOLE
     Indication: FOETAL EXPOSURE DURING PREGNANCY
     Dosage: UNK; TRIMESTER: FIRST; PROBABLY ONLY IN HOSPITAL IN WEEK 5
     Route: 064
  4. QUENSYL [Suspect]
     Active Substance: HYDROXYCHLOROQUINE
     Indication: FOETAL EXPOSURE DURING PREGNANCY
     Dosage: 400 [MG/D (2X200)]; 0?13.6 GESTATIONAL WEEK
     Route: 064
     Dates: start: 20111214, end: 20120320
  5. MIFEGYNE [Concomitant]
     Active Substance: MIFEPRISTONE
     Indication: ABORTION INDUCED
     Dosage: UNK; 13.6 GESTATIONAL WEEK
     Route: 064
     Dates: start: 20120320, end: 20120320
  6. SIMVASTATIN. [Suspect]
     Active Substance: SIMVASTATIN
     Indication: FOETAL EXPOSURE DURING PREGNANCY
     Dosage: UNK
     Route: 064
  7. DELIX (RAMIPRIL) [Suspect]
     Active Substance: RAMIPRIL
     Indication: FOETAL EXPOSURE DURING PREGNANCY
     Dosage: 20 MG, QD; 0?13.6 GESTATIONAL WEEK
     Route: 064
     Dates: start: 20111214, end: 20120320
  8. RASILEZ [Suspect]
     Active Substance: ALISKIREN
     Indication: FOETAL EXPOSURE DURING PREGNANCY
     Dosage: 300 [MG/D]; 0?4.6 GESTATIONAL WEEK
     Route: 064
     Dates: start: 20111214, end: 20120117
  9. CYTOTEC [Concomitant]
     Active Substance: MISOPROSTOL
     Indication: ABORTION INDUCED
     Dosage: UNK; 13.6 GESTATIONAL WEEK
     Route: 064
     Dates: start: 20120320, end: 20120320
  10. ADVAGRAF [Suspect]
     Active Substance: TACROLIMUS
     Indication: FOETAL EXPOSURE DURING PREGNANCY
     Dosage: 6 MG/DAILY; 0?13.6 GESTATIONAL WEEK
     Route: 064
     Dates: start: 20111214, end: 20120320
  11. ASPIRIN. [Suspect]
     Active Substance: ASPIRIN
     Indication: FOETAL EXPOSURE DURING PREGNANCY
     Dosage: 100 [MG/D]; 0?13.6 GESTATIONAL WEEK
     Route: 064
     Dates: start: 20111214, end: 20120320
  12. RITUXIMAB. [Suspect]
     Active Substance: RITUXIMAB
     Dosage: UNK, LAST TIME IN DECEMBER 2011: PRE OR PERICONCEPTIONAL
     Route: 064
  13. ALBUTEROL. [Suspect]
     Active Substance: ALBUTEROL
     Indication: FOETAL EXPOSURE DURING PREGNANCY
     Dosage: UNK, IF REQUIRED; TRIMESTER: FIRST+SECOND
     Route: 064
  14. NICOTINE. [Suspect]
     Active Substance: NICOTINE
     Indication: FOETAL EXPOSURE DURING PREGNANCY
     Dosage: UNK
     Route: 064
  15. PREDNISOLON [Suspect]
     Active Substance: PREDNISOLONE
     Indication: FOETAL EXPOSURE DURING PREGNANCY
     Dosage: 10 [MG/D]/EVERY SECOND DAY; 0?13.6 GESTATIONAL WEEK
     Route: 064
     Dates: start: 20111214, end: 20120320
  16. XARELTO [Suspect]
     Active Substance: RIVAROXABAN
     Indication: FOETAL EXPOSURE DURING PREGNANCY
     Dosage: UNK, NOT KNOWN IF ADMINISTERED BEFORE OR AFTER MISSED ABORTION; TRIMESTER OF EXPOSURE: UNKNOWN
     Route: 064
  17. NICOTINE. [Suspect]
     Active Substance: NICOTINE
     Dosage: UNKNOWN
     Route: 064
  18. PANTOZOL [Suspect]
     Active Substance: PANTOPRAZOLE SODIUM
     Indication: FOETAL EXPOSURE DURING PREGNANCY
     Dosage: 40 [MG/DAILY]; 0?13.6 GESTATIONAL WEEK
     Route: 064
     Dates: start: 20111214, end: 20120320
  19. TOREM [Suspect]
     Active Substance: TORSEMIDE
     Indication: FOETAL EXPOSURE DURING PREGNANCY
     Dosage: 100 [MG/D]; 0?13.6 GESTATIONAL WEEK
     Route: 064
     Dates: start: 20111214, end: 20120320
  20. CYCLOPHOSPHAMIDE. [Concomitant]
     Active Substance: CYCLOPHOSPHAMIDE
     Dosage: 3000 [MG CUMULATIVE]; PRECONCEPTIONAL
     Route: 064
     Dates: start: 201104, end: 201108

REACTIONS (8)
  - Congenital cardiovascular anomaly [Fatal]
  - Low birth weight baby [Unknown]
  - Ventricular septal defect [Unknown]
  - Heart disease congenital [Unknown]
  - Cardiac septal defect [Unknown]
  - Premature baby [Unknown]
  - Truncus arteriosus persistent [Unknown]
  - Foetal exposure during pregnancy [Unknown]
